FAERS Safety Report 4550216-9 (Version None)
Quarter: 2005Q1

REPORT INFORMATION
  Report Type: 
  Country: None (occurrence: None)
  Receive Date: 20050112
  Receipt Date: 20050103
  Transmission Date: 20050727
  Serious: Yes (Other)
  Sender: FDA-Public Use
  Company Number: DE-BRISTOL-MYERS SQUIBB COMPANY-12816815

PATIENT
  Age: 19 Year
  Sex: Female
  Weight: 50 kg

DRUGS (5)
  1. PLATINEX [Suspect]
     Indication: BONE SARCOMA
     Route: 042
     Dates: start: 20010807, end: 20020721
  2. METHOTREXATE [Suspect]
     Indication: BONE SARCOMA
     Route: 042
     Dates: start: 20010807, end: 20020721
  3. IFOSFAMIDE [Suspect]
     Indication: BONE SARCOMA
     Route: 042
     Dates: start: 20010807, end: 20020721
  4. DOXORUBICIN HYDROCHLORIDE [Suspect]
     Indication: BONE SARCOMA
     Route: 042
     Dates: start: 20010807, end: 20020721
  5. MARCUMAR [Concomitant]
     Dates: end: 20040501

REACTIONS (5)
  - BETA 2 MICROGLOBULIN INCREASED [None]
  - CEREBROVASCULAR ACCIDENT [None]
  - DEAFNESS TRANSITORY [None]
  - PREGNANCY [None]
  - THROMBOSIS [None]
